FAERS Safety Report 23055457 (Version 4)
Quarter: 2023Q4

REPORT INFORMATION
  Report Type: Spontaneous
  Country: US (occurrence: US)
  Receive Date: 20231011
  Receipt Date: 20231116
  Transmission Date: 20240110
  Serious: Yes (Hospitalization)
  Sender: FDA-Public Use
  Company Number: US-TRAVERE-2023TVT00497

PATIENT
  Age: 60 Year
  Sex: Male

DRUGS (4)
  1. FILSPARI [Suspect]
     Active Substance: SPARSENTAN
     Indication: IgA nephropathy
     Dosage: 200 MG
     Route: 048
     Dates: start: 20230907
  2. FILSPARI [Suspect]
     Active Substance: SPARSENTAN
     Dosage: 200 MG
     Route: 048
     Dates: start: 20230920
  3. NIFEDIPINE [Suspect]
     Active Substance: NIFEDIPINE
  4. NIFEDIPINE [Suspect]
     Active Substance: NIFEDIPINE

REACTIONS (4)
  - Hypotension [Unknown]
  - Peripheral swelling [None]
  - Paraesthesia [Unknown]
  - Fatigue [Unknown]
